FAERS Safety Report 18748503 (Version 1)
Quarter: 2021Q1

REPORT INFORMATION
  Report Type: Spontaneous
  Country: US (occurrence: US)
  Receive Date: 20210116
  Receipt Date: 20210116
  Transmission Date: 20210419
  Serious: No
  Sender: FDA-Public Use
  Company Number: US-AUROBINDO-AUR-APL-2020-036360

PATIENT

DRUGS (1)
  1. DEXAMFETAMINE+AMFETAMINE 10MG [Suspect]
     Active Substance: AMPHETAMINE\DEXTROAMPHETAMINE
     Indication: PRODUCT USED FOR UNKNOWN INDICATION
     Dosage: UNK
     Route: 065

REACTIONS (4)
  - Illness [Unknown]
  - Drug ineffective [Unknown]
  - Abdominal discomfort [Unknown]
  - Migraine [Unknown]
